FAERS Safety Report 5154530-8 (Version None)
Quarter: 2006Q4

REPORT INFORMATION
  Report Type: 
  Country: None (occurrence: None)
  Receive Date: 20061114
  Receipt Date: 20061031
  Transmission Date: 20070319
  Serious: Yes (Disabling)
  Sender: FDA-Public Use
  Company Number: 2006114891

PATIENT
  Age: 66 Year
  Sex: Male
  Weight: 70 kg

DRUGS (2)
  1. LYRICA [Suspect]
     Indication: POST HERPETIC NEURALGIA
     Dosage: 300 MG (75 MG, 4 IN 1 D), ORAL
     Route: 048
     Dates: start: 20060904
  2. TRAMADOL HCL [Concomitant]

REACTIONS (2)
  - DYSPHEMIA [None]
  - SPEECH DISORDER [None]
